FAERS Safety Report 21308216 (Version 1)
Quarter: 2022Q3

REPORT INFORMATION
  Report Type: Spontaneous
  Country: US (occurrence: US)
  Receive Date: 20220908
  Receipt Date: 20220908
  Transmission Date: 20221026
  Serious: Yes (Other)
  Sender: FDA-Public Use
  Company Number: US-SA-SAC20220902001714

PATIENT
  Age: 10 Year
  Sex: Male

DRUGS (1)
  1. FABRAZYME [Suspect]
     Active Substance: AGALSIDASE BETA
     Indication: Fabry^s disease
     Route: 065

REACTIONS (6)
  - Diabetes mellitus [Unknown]
  - Sensation of foreign body [Unknown]
  - Sneezing [Unknown]
  - Respiratory tract congestion [Unknown]
  - Vomiting [Unknown]
  - Throat tightness [Unknown]

NARRATIVE: CASE EVENT DATE: 20220101
